FAERS Safety Report 17534633 (Version 2)
Quarter: 2020Q2

REPORT INFORMATION
  Report Type: Spontaneous
  Country: FR (occurrence: FR)
  Receive Date: 20200312
  Receipt Date: 20200409
  Transmission Date: 20200713
  Serious: No
  Sender: FDA-Public Use
  Company Number: FR-AKCEA THERAPEUTICS-2019IS001431

PATIENT

DRUGS (3)
  1. TEGSEDI [Suspect]
     Active Substance: INOTERSEN SODIUM
     Dosage: 284 MG, UNK
     Route: 058
     Dates: start: 20190425
  2. TEGSEDI [Suspect]
     Active Substance: INOTERSEN SODIUM
     Indication: PRODUCT USED FOR UNKNOWN INDICATION
     Dosage: 284 MG, UNK
     Route: 058
  3. LYRICA [Concomitant]
     Active Substance: PREGABALIN
     Indication: PRODUCT USED FOR UNKNOWN INDICATION
     Dosage: UNK
     Route: 065

REACTIONS (13)
  - Constipation [Unknown]
  - Erythema [Unknown]
  - Sciatica [Unknown]
  - Oedema peripheral [Unknown]
  - Pain [Unknown]
  - Burning sensation [Unknown]
  - Injection site rash [Recovered/Resolved]
  - Middle insomnia [Unknown]
  - Fatigue [Not Recovered/Not Resolved]
  - Pain in extremity [Unknown]
  - Depressed mood [Unknown]
  - Contusion [Unknown]
  - Sensory disturbance [Unknown]

NARRATIVE: CASE EVENT DATE: 20190328
